FAERS Safety Report 8231807-0 (Version None)
Quarter: 2012Q1

REPORT INFORMATION
  Report Type: 
  Country: None (occurrence: None)
  Receive Date: 20120323
  Receipt Date: 20120314
  Transmission Date: 20120608
  Serious: Yes (Hospitalization)
  Sender: FDA-Public Use
  Company Number: US-JNJFOC-20100706893

PATIENT
  Sex: Male
  Weight: 12.5 kg

DRUGS (19)
  1. BACTRIM [Concomitant]
  2. INFLIXIMAB [Suspect]
     Route: 042
  3. INFLIXIMAB [Suspect]
     Route: 042
     Dates: start: 20100618
  4. PREDNISONE TAB [Concomitant]
  5. PROBIOTICS [Concomitant]
  6. FERROUS SULFATE TAB [Concomitant]
  7. INFLIXIMAB [Suspect]
     Route: 042
     Dates: start: 20101014
  8. INFLIXIMAB [Suspect]
     Route: 042
     Dates: start: 20101122, end: 20101122
  9. INFLIXIMAB [Suspect]
     Route: 042
     Dates: start: 20091111
  10. ANTIBIOTICS [Concomitant]
     Indication: INFLAMMATORY BOWEL DISEASE
  11. KEFLEX [Concomitant]
  12. INFLIXIMAB [Suspect]
     Indication: CROHN'S DISEASE
     Route: 042
     Dates: start: 20110301
  13. MESALAMINE [Concomitant]
     Route: 054
  14. PREVACID [Concomitant]
  15. ACETAMINOPHEN [Concomitant]
  16. MULTI-VITAMINS [Concomitant]
  17. HYDROCODONE BITARTRATE [Concomitant]
  18. MORPHINE [Concomitant]
  19. DEXTRAN INJ [Concomitant]

REACTIONS (2)
  - CROHN'S DISEASE [None]
  - INFLAMMATORY BOWEL DISEASE [None]
